FAERS Safety Report 20901423 (Version 1)
Quarter: 2022Q2

REPORT INFORMATION
  Report Type: Spontaneous
  Country: US (occurrence: US)
  Receive Date: 20220601
  Receipt Date: 20220601
  Transmission Date: 20220720
  Serious: No
  Sender: FDA-Public Use
  Company Number: US-BAUSCH-BL-2022-012759

PATIENT
  Age: 68 Year
  Sex: Female
  Weight: 68.100 kg

DRUGS (2)
  1. PROLENSA [Suspect]
     Active Substance: BROMFENAC SODIUM
     Indication: Diabetic retinopathy
     Route: 047
     Dates: start: 20220425, end: 20220509
  2. PROLENSA [Suspect]
     Active Substance: BROMFENAC SODIUM
     Indication: Product use in unapproved indication

REACTIONS (3)
  - Vision blurred [Recovered/Resolved]
  - Instillation site pain [Recovered/Resolved]
  - Product use in unapproved indication [Unknown]

NARRATIVE: CASE EVENT DATE: 20220401
